FAERS Safety Report 4612092-5 (Version None)
Quarter: 2005Q2

REPORT INFORMATION
  Report Type: 
  Country: None (occurrence: None)
  Receive Date: 20050308
  Receipt Date: 20041223
  Transmission Date: 20051028
  Serious: Yes (Other)
  Sender: FDA-Public Use
  Company Number: 2004UW26116

PATIENT
  Age: 71 Year
  Sex: Female
  Weight: 63.502 kg

DRUGS (5)
  1. CRESTOR [Suspect]
     Indication: BLOOD CHOLESTEROL INCREASED
     Dosage: 10 MG ONCE PO
     Route: 048
     Dates: start: 20041222
  2. ATENOLOL [Concomitant]
  3. CAPTOPRIL [Concomitant]
  4. ASPIRIN [Concomitant]
  5. PEPCID COMPLETE [Concomitant]

REACTIONS (5)
  - HEART RATE INCREASED [None]
  - ILL-DEFINED DISORDER [None]
  - NAUSEA [None]
  - PAIN [None]
  - PALPITATIONS [None]
